FAERS Safety Report 6738417-2 (Version None)
Quarter: 2010Q2

REPORT INFORMATION
  Report Type: 
  Country: None (occurrence: None)
  Receive Date: 20100524
  Receipt Date: 20100514
  Transmission Date: 20101027
  Serious: Yes (Hospitalization)
  Sender: FDA-Public Use
  Company Number: US-ALEXION-A201000170

PATIENT
  Sex: Female

DRUGS (7)
  1. SOLIRIS [Suspect]
     Indication: PAROXYSMAL NOCTURNAL HAEMOGLOBINURIA
     Dosage: 600 MG, QW
     Route: 042
     Dates: start: 20100201, end: 20100222
  2. SOLIRIS [Suspect]
     Dosage: 900 MG, UNK
     Route: 042
     Dates: start: 20100301
  3. POTASSIUM CHLORIDE [Concomitant]
     Dosage: 20 MEQ, QID
     Route: 048
  4. FOLIC ACID [Concomitant]
     Dosage: 1 MG, QD
     Route: 048
  5. PROCARDIA XL [Concomitant]
     Dosage: 90 MG, QD
     Route: 048
  6. PREDNISONE [Concomitant]
     Dosage: 30 MG, QD
     Route: 048
  7. VITAMIN C                          /00008001/ [Concomitant]
     Dosage: UNK
     Route: 048

REACTIONS (9)
  - DRUG INEFFECTIVE [None]
  - EPISTAXIS [None]
  - HAEMATOCRIT DECREASED [None]
  - HAEMOGLOBIN DECREASED [None]
  - HEADACHE [None]
  - PLATELET COUNT DECREASED [None]
  - PYREXIA [None]
  - RED BLOOD CELL COUNT DECREASED [None]
  - VAGINAL HAEMORRHAGE [None]
